FAERS Safety Report 11815392 (Version 1)
Quarter: 2015Q4

REPORT INFORMATION
  Report Type: Spontaneous
  Country: BR (occurrence: BR)
  Receive Date: 20151209
  Receipt Date: 20151209
  Transmission Date: 20160305
  Serious: Yes (Death, Hospitalization)
  Sender: FDA-Public Use
  Company Number: BR-TEVA-616015ISR

PATIENT
  Age: 71 Year
  Sex: Male

DRUGS (2)
  1. TEVAOXALI [Suspect]
     Active Substance: OXALIPLATIN
     Indication: GASTRIC CANCER
     Route: 042
     Dates: start: 20150422, end: 20150719
  2. FAULDFLUOR [Concomitant]
     Active Substance: FLUOROURACIL
     Indication: GASTRIC CANCER
     Route: 042
     Dates: start: 20150422, end: 20150719

REACTIONS (16)
  - Septic shock [Fatal]
  - Nervous system disorder [Fatal]
  - Pneumonia [Fatal]
  - Renal failure [Fatal]
  - Depressed level of consciousness [Fatal]
  - Blood disorder [Fatal]
  - Haemodynamic test abnormal [Fatal]
  - Pancytopenia [Fatal]
  - Infection [Fatal]
  - Hepatic failure [Fatal]
  - Fungal infection [Fatal]
  - Thrombocytopenia [Fatal]
  - Colitis [Fatal]
  - Electroencephalogram abnormal [Fatal]
  - Hyperbilirubinaemia [Fatal]
  - Disease progression [Fatal]

NARRATIVE: CASE EVENT DATE: 2015
